FAERS Safety Report 7396721-1 (Version None)
Quarter: 2011Q2

REPORT INFORMATION
  Report Type: 
  Country: None (occurrence: None)
  Receive Date: 20110406
  Receipt Date: 20110325
  Transmission Date: 20111010
  Serious: Yes (Other)
  Sender: FDA-Public Use
  Company Number: MX-BAYER-2011-026993

PATIENT
  Sex: Female
  Weight: 70 kg

DRUGS (2)
  1. ANGELIQ [Suspect]
     Indication: PRODUCT USED FOR UNKNOWN INDICATION
     Dosage: 1 DF, QD
     Route: 048
     Dates: start: 20050101, end: 20110116
  2. PRAVASTATIN [Concomitant]
     Indication: BLOOD TRIGLYCERIDES INCREASED
     Dosage: UNK
     Route: 048
     Dates: start: 20110101, end: 20110101

REACTIONS (2)
  - OVARIAN CYST [None]
  - BENIGN BREAST NEOPLASM [None]
